APPROVED DRUG PRODUCT: TOFRANIL-PM
Active Ingredient: IMIPRAMINE PAMOATE
Strength: EQ 150MG HYDROCHLORIDE **Federal Register determination that product was not discontinued or withdrawn for safety or effectiveness reasons**
Dosage Form/Route: CAPSULE;ORAL
Application: N017090 | Product #002
Applicant: SPECGX LLC
Approved: Approved Prior to Jan 1, 1982 | RLD: Yes | RS: No | Type: DISCN